FAERS Safety Report 24820383 (Version 4)
Quarter: 2025Q4

REPORT INFORMATION
  Report Type: Report from Study
  Country: US (occurrence: US)
  Receive Date: 20250108
  Receipt Date: 20251201
  Transmission Date: 20260118
  Serious: Yes (Hospitalization, Other)
  Sender: TAKEDA
  Company Number: US-TAKEDA-2016BLT007861

PATIENT
  Age: 82 Year
  Sex: Female

DRUGS (3)
  1. HUMAN IMMUNOGLOBULIN G\HYALURONIDASE RECOMBINANT HUMAN [Suspect]
     Active Substance: HUMAN IMMUNOGLOBULIN G\HYALURONIDASE (HUMAN RECOMBINANT)
     Indication: Immunodeficiency common variable
     Dosage: UNK
  2. HUMAN IMMUNOGLOBULIN G [Suspect]
     Active Substance: HUMAN IMMUNOGLOBULIN G
     Indication: Primary immunodeficiency syndrome
     Dosage: UNK UNK, MONTHLY
  3. HUMAN IMMUNOGLOBULIN G [Suspect]
     Active Substance: HUMAN IMMUNOGLOBULIN G
     Indication: Immunodeficiency common variable
     Dosage: UNK

REACTIONS (9)
  - Deafness unilateral [Unknown]
  - Blood pressure increased [Unknown]
  - Bone disorder [Unknown]
  - Arthritis [Unknown]
  - Viral infection [Unknown]
  - Cystitis [Unknown]
  - Malaise [Unknown]
  - Administration site erythema [Recovered/Resolved]
  - Administration site warmth [Recovered/Resolved]

NARRATIVE: CASE EVENT DATE: 20161001
